FAERS Safety Report 14964085 (Version 2)
Quarter: 2018Q2

REPORT INFORMATION
  Report Type: Spontaneous
  Country: US (occurrence: US)
  Receive Date: 20180601
  Receipt Date: 20180621
  Transmission Date: 20180711
  Serious: Yes (Death)
  Sender: FDA-Public Use
  Company Number: US-IMPAX LABORATORIES, INC-2018-IPXL-01832

PATIENT
  Sex: Male

DRUGS (1)
  1. RYTARY [Suspect]
     Active Substance: CARBIDOPA\LEVODOPA
     Indication: PARKINSON^S DISEASE
     Dosage: 48.75/195MG 1 CAPSULE, 3/DAY, 61.25/245 MG 1 CAPSULE 5/DAY, 23.75/95 MG 1 CAPSULE 3/DAY
     Route: 048

REACTIONS (2)
  - Parkinson^s disease [Fatal]
  - Dementia [Fatal]
